FAERS Safety Report 14995811 (Version 1)
Quarter: 2018Q2

REPORT INFORMATION
  Report Type: Spontaneous
  Country: None (occurrence: US)
  Receive Date: 20180611
  Receipt Date: 20180611
  Transmission Date: 20180711
  Serious: No
  Sender: FDA-Public Use
  Company Number: US-KEDRION-2017-200

PATIENT
  Age: 32 Year
  Sex: Female

DRUGS (2)
  1. HUMAN ANTI-D IMMUNOGLOBULIN [Suspect]
     Active Substance: HUMAN RHO(D) IMMUNE GLOBULIN
     Dates: start: 2008
  2. VITAMINS NOS [Concomitant]
     Active Substance: VITAMINS

REACTIONS (2)
  - Eye disorder [Unknown]
  - Goitre [Unknown]

NARRATIVE: CASE EVENT DATE: 201104
